FAERS Safety Report 9675625 (Version 2)
Quarter: 2013Q4

REPORT INFORMATION
  Report Type: Spontaneous
  Country: US (occurrence: US)
  Receive Date: 20131107
  Receipt Date: 20131216
  Transmission Date: 20140711
  Serious: Yes (Life-Threatening, Congenital Anomaly, Other)
  Sender: FDA-Public Use
  Company Number: US-PFIZER INC-2013316113

PATIENT
  Sex: Female

DRUGS (6)
  1. ZOLOFT [Suspect]
     Dosage: UNK
     Route: 064
     Dates: start: 200502, end: 200502
  2. ZOLOFT [Suspect]
     Dosage: UNK
     Route: 064
     Dates: start: 200504, end: 201201
  3. SERTRALINE HCL [Suspect]
     Dosage: UNK
     Route: 064
     Dates: start: 200502, end: 200502
  4. SERTRALINE HCL [Suspect]
     Dosage: UNK
     Route: 064
     Dates: start: 200504, end: 201201
  5. TYLENOL [Concomitant]
     Dosage: UNK
     Route: 064
  6. PRENATAL VITAMINS [Concomitant]
     Dosage: UNK
     Route: 064

REACTIONS (6)
  - Maternal exposure during pregnancy [Recovering/Resolving]
  - Congenital anomaly [Unknown]
  - Ventricular septal defect [Recovering/Resolving]
  - Congenital coronary artery malformation [Unknown]
  - Atrial septal defect [Unknown]
  - Premature baby [Unknown]
